FAERS Safety Report 4898834-2 (Version None)
Quarter: 2006Q1

REPORT INFORMATION
  Report Type: 
  Country: None (occurrence: None)
  Receive Date: 20060202
  Receipt Date: 20051220
  Transmission Date: 20060701
  Serious: Yes (Hospitalization)
  Sender: FDA-Public Use
  Company Number: FR-GLAXOSMITHKLINE-B0404316A

PATIENT
  Age: 37 Year
  Sex: Female

DRUGS (1)
  1. IMIGRANE [Suspect]
     Indication: HEADACHE
     Route: 055
     Dates: start: 20051006, end: 20051008

REACTIONS (8)
  - EYE IRRITATION [None]
  - FACE OEDEMA [None]
  - LYMPHADENOPATHY [None]
  - NASAL DISCOMFORT [None]
  - NASAL DISORDER [None]
  - NASAL NECROSIS [None]
  - NASAL TURBINATE HYPERTROPHY [None]
  - PITUITARY ENLARGEMENT [None]
